FAERS Safety Report 17445387 (Version 1)
Quarter: 2020Q1

REPORT INFORMATION
  Report Type: Spontaneous
  Country: SE (occurrence: SE)
  Receive Date: 20200221
  Receipt Date: 20200221
  Transmission Date: 20200409
  Serious: Yes (Hospitalization)
  Sender: FDA-Public Use
  Company Number: SE-ASTRAZENECA-2020SE22887

PATIENT
  Age: 49 Year
  Sex: Male
  Weight: 113 kg

DRUGS (8)
  1. METOPROLOL SANDOZ [Concomitant]
     Active Substance: METOPROLOL
     Dates: start: 20190524
  2. METFORMIN [Concomitant]
     Active Substance: METFORMIN HYDROCHLORIDE
     Dates: start: 20190524
  3. FURIX [Concomitant]
     Dates: start: 20190524, end: 20200118
  4. RAMIPRIL HEXAL [Concomitant]
     Active Substance: RAMIPRIL
     Route: 065
     Dates: start: 20190524
  5. TROMBYL [Concomitant]
     Active Substance: ASPIRIN
     Dates: start: 20190524
  6. ATORVASTATIN [Concomitant]
     Active Substance: ATORVASTATIN
     Dates: start: 20190524
  7. BRILIQUE [Suspect]
     Active Substance: TICAGRELOR
     Indication: CARDIAC FAILURE
     Route: 065
     Dates: start: 20190524, end: 20190531
  8. EPLERENON STADA [Concomitant]
     Dates: start: 20190524

REACTIONS (2)
  - Palpitations [Recovered/Resolved]
  - Malaise [Recovered/Resolved]

NARRATIVE: CASE EVENT DATE: 20190531
